FAERS Safety Report 19416409 (Version 1)
Quarter: 2021Q2

REPORT INFORMATION
  Report Type: Spontaneous
  Country: US (occurrence: US)
  Receive Date: 20210614
  Receipt Date: 20210614
  Transmission Date: 20210717
  Serious: Yes (Hospitalization)
  Sender: FDA-Public Use
  Company Number: None

PATIENT
  Sex: Female

DRUGS (24)
  1. AMOXICILLIN. [Concomitant]
     Active Substance: AMOXICILLIN
  2. SMZ/TMP DS [Concomitant]
     Active Substance: SULFAMETHOXAZOLE\TRIMETHOPRIM
  3. AVONEX PREFL [Concomitant]
  4. FLUTICASONE SPR [Concomitant]
  5. PRAVASTATIN. [Concomitant]
     Active Substance: PRAVASTATIN
  6. TERBINAFINE. [Concomitant]
     Active Substance: TERBINAFINE
  7. DIMETHYL FUM 240MG CAP [Suspect]
     Active Substance: DIMETHYL FUMARATE
     Indication: MULTIPLE SCLEROSIS
     Route: 048
     Dates: start: 20201110
  8. LEVOTHYROXIN [Concomitant]
     Active Substance: LEVOTHYROXINE
  9. NAPROXEN DR [Concomitant]
     Active Substance: NAPROXEN
  10. PROPO?N/APAP [Concomitant]
  11. SULINDAC. [Concomitant]
     Active Substance: SULINDAC
  12. IRON [Concomitant]
     Active Substance: IRON
  13. ADVAIR DISKU [Concomitant]
  14. CEPHALEXIN. [Concomitant]
     Active Substance: CEPHALEXIN
  15. AMITRIPTYLIN [Concomitant]
     Active Substance: AMITRIPTYLINE
  16. AZITHROMYCIN ANHYDROUS. [Concomitant]
     Active Substance: AZITHROMYCIN ANHYDROUS
  17. CRUSH VIT C [Concomitant]
  18. SYNTHROID [Concomitant]
     Active Substance: LEVOTHYROXINE SODIUM
  19. APAP/CODEINE [Concomitant]
     Active Substance: ACETAMINOPHEN\CODEINE PHOSPHATE
  20. ATORVASTATIN [Concomitant]
     Active Substance: ATORVASTATIN
  21. BETAMETH DIP [Concomitant]
  22. CHLORHEX GLU [Concomitant]
     Active Substance: CHLORHEXIDINE GLUCONATE
  23. METHYLPRED [Concomitant]
     Active Substance: METHYLPREDNISOLONE
  24. PROMETHAZINE [Concomitant]
     Active Substance: PROMETHAZINE HYDROCHLORIDE

REACTIONS (4)
  - Influenza like illness [None]
  - Dehydration [None]
  - Movement disorder [None]
  - Sinusitis [None]
